FAERS Safety Report 8380738-4 (Version None)
Quarter: 2012Q2

REPORT INFORMATION
  Report Type: 
  Country: None (occurrence: None)
  Receive Date: 20120523
  Receipt Date: 20120517
  Transmission Date: 20120825
  Serious: Yes (Death)
  Sender: FDA-Public Use
  Company Number: GB-PFIZER INC-2011271349

PATIENT
  Age: 68 Year
  Sex: Female

DRUGS (3)
  1. SILDENAFIL CITRATE [Suspect]
     Indication: PULMONARY HYPERTENSION
     Dosage: 25 MG, 3X/DAY
     Route: 048
  2. SILDENAFIL CITRATE [Suspect]
     Dosage: TWO 50 MG, 3X/DAY
  3. SILDENAFIL CITRATE [Suspect]
     Dosage: 50 MG, 3X/DAY

REACTIONS (3)
  - PULMONARY FIBROSIS [None]
  - INCORRECT DOSE ADMINISTERED [None]
  - PULMONARY HYPERTENSION [None]
